FAERS Safety Report 4441918-3 (Version None)
Quarter: 2004Q3

REPORT INFORMATION
  Report Type: 
  Country: None (occurrence: None)
  Receive Date: 20040901
  Receipt Date: 20040818
  Transmission Date: 20050211
  Serious: Yes (Hospitalization)
  Sender: FDA-Public Use
  Company Number: 2004230261BR

PATIENT
  Age: 19 Month
  Sex: Male

DRUGS (1)
  1. DEPO-PROVERA [Suspect]
     Dates: start: 20040810, end: 20040810

REACTIONS (4)
  - ABDOMINAL PAIN [None]
  - DIARRHOEA [None]
  - DRUG EXPOSURE VIA BREAST MILK [None]
  - VOMITING [None]
